FAERS Safety Report 8256978-1 (Version None)
Quarter: 2012Q2

REPORT INFORMATION
  Report Type: 
  Country: None (occurrence: None)
  Receive Date: 20120403
  Receipt Date: 20120330
  Transmission Date: 20120825
  Serious: Yes (Hospitalization)
  Sender: FDA-Public Use
  Company Number: US-GLAXOSMITHKLINE-A0903162A

PATIENT
  Sex: Male

DRUGS (1)
  1. AVANDIA [Suspect]
     Indication: DIABETES MELLITUS
     Dosage: 4MG PER DAY
     Route: 048
     Dates: start: 20040301, end: 20070301

REACTIONS (10)
  - CORONARY ARTERY DISEASE [None]
  - HYPERTENSION [None]
  - ANXIETY [None]
  - PORTAL VEIN THROMBOSIS [None]
  - BLINDNESS [None]
  - BLOOD DISORDER [None]
  - MYOCARDIAL INFARCTION [None]
  - TRANSIENT ISCHAEMIC ATTACK [None]
  - CEREBROVASCULAR ACCIDENT [None]
  - DEPRESSION [None]
